FAERS Safety Report 8130903-6 (Version None)
Quarter: 2012Q1

REPORT INFORMATION
  Report Type: 
  Country: None (occurrence: None)
  Receive Date: 20120213
  Receipt Date: 20120211
  Transmission Date: 20120608
  Serious: No
  Sender: FDA-Public Use
  Company Number: US-PFIZER INC-2012037345

PATIENT
  Sex: Male

DRUGS (1)
  1. ZOLOFT [Suspect]
     Dosage: UNK, 1X/DAY
     Dates: start: 20120201

REACTIONS (4)
  - DISTURBANCE IN ATTENTION [None]
  - TREMOR [None]
  - NAUSEA [None]
  - FEELING ABNORMAL [None]
